FAERS Safety Report 4733505-4 (Version None)
Quarter: 2005Q3

REPORT INFORMATION
  Report Type: 
  Country: None (occurrence: None)
  Receive Date: 20050801
  Receipt Date: 20050718
  Transmission Date: 20060218
  Serious: Yes (Life-Threatening, Hospitalization)
  Sender: FDA-Public Use
  Company Number: 2005102330

PATIENT
  Age: 46 Year
  Sex: Male

DRUGS (3)
  1. LIPITOR [Suspect]
     Indication: DYSLIPIDAEMIA
     Dosage: 20 MG (20 MG, 1 IN 1 D), ORAL
     Route: 048
     Dates: start: 20040101, end: 20050601
  2. KETOCONAZOLE (KETOCONAZOLE0 [Suspect]
     Indication: ONYCHOMYCOSIS
     Dosage: (200 MG , 1 IN 1 D), ORAL
     Route: 048
     Dates: start: 20040101, end: 20050601
  3. AMOKSIKLAV (AMOXICILLIN, CLAVULANIC ACID) [Concomitant]

REACTIONS (3)
  - ANAPHYLACTIC SHOCK [None]
  - ONYCHOMYCOSIS [None]
  - SYNCOPE [None]
